FAERS Safety Report 18685712 (Version 2)
Quarter: 2021Q1

REPORT INFORMATION
  Report Type: Spontaneous
  Country: US (occurrence: US)
  Receive Date: 20201230
  Receipt Date: 20210129
  Transmission Date: 20210419
  Serious: Yes (Other)
  Sender: FDA-Public Use
  Company Number: US-BLUEPRINT MEDICINES CORPORATION-SP-US-2020-001350

PATIENT
  Sex: Male

DRUGS (2)
  1. AYVAKIT [Suspect]
     Active Substance: AVAPRITINIB
     Indication: MALIGNANT CONNECTIVE TISSUE NEOPLASM
     Route: 048
     Dates: start: 20200926
  2. AYVAKIT [Suspect]
     Active Substance: AVAPRITINIB
     Indication: SOFT TISSUE SARCOMA

REACTIONS (10)
  - Haemoglobin decreased [Unknown]
  - Off label use [Unknown]
  - Red blood cell count decreased [Unknown]
  - Deformity of orbit [Unknown]
  - Drug ineffective for unapproved indication [Unknown]
  - Neoplasm progression [Unknown]
  - Periorbital swelling [Unknown]
  - Swelling of eyelid [Unknown]
  - White blood cell count decreased [Unknown]
  - Eyelid ptosis [Unknown]
